FAERS Safety Report 10220999 (Version 2)
Quarter: 2014Q2

REPORT INFORMATION
  Report Type: Report from Study
  Country: US (occurrence: US)
  Receive Date: 20140606
  Receipt Date: 20140611
  Transmission Date: 20141212
  Serious: Yes (Hospitalization)
  Sender: FDA-Public Use
  Company Number: US-JNJFOC-20140601038

PATIENT
  Age: 67 Year
  Sex: Male
  Weight: 84.82 kg

DRUGS (16)
  1. PLACEBO [Suspect]
     Route: 048
  2. PLACEBO [Suspect]
     Indication: MANTLE CELL LYMPHOMA
     Route: 048
     Dates: start: 20140529, end: 20140530
  3. BENDAMUSTINE [Suspect]
     Indication: MANTLE CELL LYMPHOMA
     Dosage: DAY 1 + DAY 2
     Route: 042
     Dates: start: 20140529
  4. RITUXIMAB [Suspect]
     Indication: MANTLE CELL LYMPHOMA
     Route: 042
  5. ZYLOPRIM [Concomitant]
     Route: 048
  6. ASPIRIN [Concomitant]
     Route: 048
  7. SYMBICORT [Concomitant]
     Route: 055
  8. INVOKANA [Concomitant]
     Route: 048
  9. NEXIUM [Concomitant]
     Dosage: BEFORE BREAKFAST
     Route: 048
  10. FLONASE [Concomitant]
     Route: 045
  11. TRADJENTA [Concomitant]
     Route: 048
  12. GLUCOPHAGE [Concomitant]
     Route: 048
  13. TOPROL XL [Concomitant]
     Dosage: TAKE WITH OR IMMEDIATELY FOLLOWING A MEAL
     Route: 048
  14. SINGULAIR [Concomitant]
     Dosage: AY NIGHT
     Route: 048
  15. BENICAR [Concomitant]
     Route: 048
  16. PAXIL [Concomitant]
     Dosage: EVERY MORNING AT 7 AM
     Route: 048

REACTIONS (3)
  - Hyperkalaemia [Not Recovered/Not Resolved]
  - Hypoxia [Not Recovered/Not Resolved]
  - Pulmonary haemorrhage [Not Recovered/Not Resolved]
